FAERS Safety Report 10241164 (Version 1)
Quarter: 2014Q2

REPORT INFORMATION
  Report Type: Spontaneous
  Country: US (occurrence: US)
  Receive Date: 20140617
  Receipt Date: 20140617
  Transmission Date: 20141212
  Serious: No
  Sender: FDA-Public Use
  Company Number: US-PFIZER INC-2014164522

PATIENT
  Age: 13 Year
  Sex: Female

DRUGS (1)
  1. BICILLIN L-A [Suspect]
     Indication: PHARYNGITIS STREPTOCOCCAL
     Dosage: UNK
     Dates: start: 20140612

REACTIONS (1)
  - Epistaxis [Unknown]
